FAERS Safety Report 14037916 (Version 2)
Quarter: 2017Q4

REPORT INFORMATION
  Report Type: Spontaneous
  Country: IT (occurrence: IT)
  Receive Date: 20171004
  Receipt Date: 20171026
  Transmission Date: 20180321
  Serious: Yes (Life-Threatening, Hospitalization)
  Sender: FDA-Public Use
  Company Number: IT-ACCORD-059504

PATIENT
  Age: 67 Year
  Sex: Female

DRUGS (3)
  1. OXALIPLATIN ACCORD [Suspect]
     Active Substance: OXALIPLATIN
     Indication: RECTOSIGMOID CANCER
     Route: 042
     Dates: start: 20170703, end: 20170703
  2. FOLINIC ACID [Concomitant]
     Active Substance: LEUCOVORIN
     Indication: RECTOSIGMOID CANCER
  3. FLUOROURACIL. [Concomitant]
     Active Substance: FLUOROURACIL
     Indication: RECTOSIGMOID CANCER

REACTIONS (6)
  - Hypotension [Recovered/Resolved]
  - Trismus [Recovered/Resolved]
  - Generalised tonic-clonic seizure [Recovered/Resolved]
  - Laryngospasm [Recovered/Resolved]
  - Loss of consciousness [Recovered/Resolved]
  - Bronchospasm [Recovered/Resolved]

NARRATIVE: CASE EVENT DATE: 20170703
